FAERS Safety Report 20669331 (Version 1)
Quarter: 2022Q2

REPORT INFORMATION
  Report Type: Spontaneous
  Country: US (occurrence: US)
  Receive Date: 20220404
  Receipt Date: 20220404
  Transmission Date: 20220720
  Serious: No
  Sender: FDA-Public Use
  Company Number: US-GLAXOSMITHKLINE-US2022AMR058695

PATIENT
  Sex: Female

DRUGS (1)
  1. ZEJULA [Suspect]
     Active Substance: NIRAPARIB
     Indication: Ovarian cancer
     Dosage: 100 MG, QD
     Route: 048
     Dates: start: 20180326

REACTIONS (6)
  - Insomnia [Unknown]
  - Pain [Unknown]
  - Fatigue [Unknown]
  - Palpitations [Unknown]
  - Nausea [Unknown]
  - Product dose omission issue [Unknown]
